FAERS Safety Report 5470317-0 (Version None)
Quarter: 2007Q3

REPORT INFORMATION
  Report Type: 
  Country: None (occurrence: None)
  Receive Date: 20070925
  Receipt Date: 20070912
  Transmission Date: 20080115
  Serious: Yes (Hospitalization)
  Sender: FDA-Public Use
  Company Number: CHNY2007IT03171

PATIENT
  Age: 25 Year
  Sex: Female

DRUGS (1)
  1. ACETYLSALICYLIC ACID SRT [Suspect]
     Indication: CHEST PAIN

REACTIONS (9)
  - CARDIAC TAMPONADE [None]
  - CHEST PAIN [None]
  - CONDITION AGGRAVATED [None]
  - GASTRIC ULCER [None]
  - OVARIAN CYST RUPTURED [None]
  - PERITONEAL HAEMORRHAGE [None]
  - POST PROCEDURAL FISTULA [None]
  - PURULENCE [None]
  - SHOCK [None]
